FAERS Safety Report 4849091-4 (Version None)
Quarter: 2005Q4

REPORT INFORMATION
  Report Type: 
  Country: None (occurrence: None)
  Receive Date: 20051209
  Receipt Date: 20050921
  Transmission Date: 20060501
  Serious: Yes (Life-Threatening, Hospitalization, Other)
  Sender: FDA-Public Use
  Company Number: 2005UW13981

PATIENT
  Age: 30 Year
  Sex: Male

DRUGS (4)
  1. SEROQUEL [Suspect]
     Indication: SCHIZOPHRENIA
     Route: 048
     Dates: start: 20050601, end: 20050101
  2. SEROQUEL [Suspect]
     Route: 048
     Dates: start: 20050101
  3. VALPROIC ACID [Concomitant]
     Indication: SCHIZOPHRENIA
     Route: 048
     Dates: start: 20010101, end: 20050101
  4. CLOZAPINE [Concomitant]
     Indication: SCHIZOPHRENIA
     Dates: start: 20040101, end: 20050101

REACTIONS (1)
  - PANCREATITIS HAEMORRHAGIC [None]
